FAERS Safety Report 6243467-9 (Version None)
Quarter: 2009Q2

REPORT INFORMATION
  Report Type: 
  Country: None (occurrence: None)
  Receive Date: 20090624
  Receipt Date: 20090618
  Transmission Date: 20091009
  Serious: Yes (Other)
  Sender: FDA-Public Use
  Company Number: US-AVENTIS-200915379US

PATIENT
  Age: 70 Year
  Sex: Female
  Weight: 124.99 kg

DRUGS (2)
  1. LANTUS [Suspect]
     Route: 058
     Dates: start: 20060101
  2. ACTOS [Suspect]
     Dosage: DOSE: UNK
     Dates: start: 20060101

REACTIONS (1)
  - WEIGHT INCREASED [None]
